FAERS Safety Report 5018751-7 (Version None)
Quarter: 2006Q2

REPORT INFORMATION
  Report Type: 
  Country: None (occurrence: None)
  Receive Date: 20060525
  Receipt Date: 20060510
  Transmission Date: 20061013
  Serious: Yes (Other)
  Sender: FDA-Public Use
  Company Number: B0424495A

PATIENT
  Sex: Male

DRUGS (3)
  1. WELLBUTRIN [Suspect]
     Indication: ANTIDEPRESSANT THERAPY
  2. VENLAFAXINE HCL [Suspect]
     Indication: ANTIDEPRESSANT THERAPY
  3. FLUVOXAMINE MALEATE [Concomitant]

REACTIONS (4)
  - DISINHIBITION [None]
  - LETHARGY [None]
  - SELF INJURIOUS BEHAVIOUR [None]
  - SUICIDE ATTEMPT [None]
